FAERS Safety Report 21213906 (Version 1)
Quarter: 2022Q3

REPORT INFORMATION
  Report Type: Report from Study
  Country: US (occurrence: US)
  Receive Date: 20220816
  Receipt Date: 20220816
  Transmission Date: 20221027
  Serious: Yes (Other)
  Sender: FDA-Public Use
  Company Number: US-GBT-015220

PATIENT
  Age: 0 Year
  Sex: Female
  Weight: 3.2 kg

DRUGS (1)
  1. OXBRYTA [Suspect]
     Active Substance: VOXELOTOR

REACTIONS (1)
  - Ventricular septal defect [Unknown]

NARRATIVE: CASE EVENT DATE: 20220501
